FAERS Safety Report 12211047 (Version 1)
Quarter: 2016Q1

REPORT INFORMATION
  Report Type: Spontaneous
  Country: IN (occurrence: IN)
  Receive Date: 20160325
  Receipt Date: 20160325
  Transmission Date: 20160526
  Serious: Yes (Death, Other)
  Sender: FDA-Public Use
  Company Number: IN-009507513-1603IND009377

PATIENT
  Age: 63 Year
  Sex: Male
  Weight: 62 kg

DRUGS (1)
  1. JANUMET [Suspect]
     Active Substance: METFORMIN HYDROCHLORIDE\SITAGLIPTIN PHOSPHATE
     Indication: DIABETES MELLITUS
     Dosage: 2 TABLETS/ DAY, BID
     Route: 048
     Dates: start: 20140608

REACTIONS (1)
  - Silent myocardial infarction [Fatal]
